FAERS Safety Report 9519988 (Version 1)
Quarter: 2013Q1

REPORT INFORMATION
  Report Type: Spontaneous
  Country: US (occurrence: None)
  Receive Date: 20130305
  Receipt Date: 20130305
  Transmission Date: 20140127
  Serious: Yes (Other)
  Sender: FDA-Public Use
  Company Number: 163-21880-12090625

PATIENT
  Age: 63 Year
  Sex: Male

DRUGS (1)
  1. REVLIMID [Suspect]
     Indication: MYELODYSPLASTIC SYNDROME
     Dosage: 1 IN 1 D
     Route: 048
     Dates: start: 20120717

REACTIONS (5)
  - Candida infection [None]
  - Drug intolerance [None]
  - Stomatitis [None]
  - Dysuria [None]
  - Rash [None]
